FAERS Safety Report 8549285 (Version 2)
Quarter: 2016Q2

REPORT INFORMATION
  Report Type: Spontaneous
  Country: US (occurrence: US)
  Receive Date: 20120507
  Receipt Date: 20160608
  Transmission Date: 20160815
  Serious: Yes (Hospitalization, Other)
  Sender: FDA-Public Use
  Company Number: US-SANOFI-AVENTIS-2012SA030150

PATIENT
  Age: 63 Year
  Sex: Female

DRUGS (9)
  1. SYNTHROID [Concomitant]
     Active Substance: LEVOTHYROXINE SODIUM
     Route: 048
  2. GLYBURIDE. [Concomitant]
     Active Substance: GLYBURIDE
     Route: 048
  3. PLAVIX [Suspect]
     Active Substance: CLOPIDOGREL BISULFATE
     Indication: ACUTE CORONARY SYNDROME
     Route: 048
     Dates: start: 20061001, end: 20101003
  4. ROSUVASTATIN. [Concomitant]
     Active Substance: ROSUVASTATIN
  5. NOVOLIN [Concomitant]
     Active Substance: INSULIN HUMAN
     Dosage: DOSE:50 UNIT(S)
     Route: 058
  6. PLAVIX [Suspect]
     Active Substance: CLOPIDOGREL BISULFATE
     Indication: STENT PLACEMENT
     Route: 048
     Dates: start: 20061001, end: 20101003
  7. PLAVIX [Suspect]
     Active Substance: CLOPIDOGREL BISULFATE
     Indication: CARDIOVASCULAR DISORDER
     Route: 048
     Dates: start: 20061001, end: 20101003
  8. CYANOCOBALAMIN. [Concomitant]
     Active Substance: CYANOCOBALAMIN
     Route: 030
  9. VITAMIN B COMPLEX [Concomitant]
     Active Substance: CYANOCOBALAMIN\DEXPANTHENOL\NIACINAMIDE\PYRIDOXINE HYDROCHLORIDE\RIBOFLAVIN 5^-PHOSPHATE SODIUM\THIAMINE HYDROCHLORIDE\VITAMIN B COMPLEX

REACTIONS (16)
  - Obesity [Unknown]
  - Respiratory failure [Unknown]
  - Facial paralysis [Unknown]
  - Fall [Unknown]
  - Hypothyroidism [Unknown]
  - Venous thrombosis [Unknown]
  - Hemiparesis [Unknown]
  - Hypoaesthesia [Unknown]
  - Carotid artery occlusion [Unknown]
  - Urinary tract infection [Unknown]
  - Anaemia [Unknown]
  - Therapeutic response decreased [Unknown]
  - Cerebrovascular accident [Unknown]
  - Oral candidiasis [Unknown]
  - Diabetes mellitus [Unknown]
  - Hypertension [Unknown]

NARRATIVE: CASE EVENT DATE: 201010
